FAERS Safety Report 25488987 (Version 1)
Quarter: 2025Q2

REPORT INFORMATION
  Report Type: Spontaneous
  Country: CA (occurrence: CA)
  Receive Date: 20250627
  Receipt Date: 20250627
  Transmission Date: 20250716
  Serious: Yes (Death, Life-Threatening, Hospitalization, Disabling, Congenital Anomaly, Other)
  Sender: SANOFI AVENTIS
  Company Number: CA-SA-2025SA176542

PATIENT
  Age: 40 Year
  Sex: Female
  Weight: 96 kg

DRUGS (249)
  1. ARAVA [Suspect]
     Active Substance: LEFLUNOMIDE
     Indication: Product used for unknown indication
  2. HYDROXYCHLOROQUINE SULFATE [Suspect]
     Active Substance: HYDROXYCHLOROQUINE SULFATE
     Indication: Rheumatoid arthritis
  3. HYDROXYCHLOROQUINE SULFATE [Suspect]
     Active Substance: HYDROXYCHLOROQUINE SULFATE
     Dosage: 25 MG, QW
  4. HYDROXYCHLOROQUINE SULFATE [Suspect]
     Active Substance: HYDROXYCHLOROQUINE SULFATE
     Route: 048
  5. HYDROXYCHLOROQUINE SULFATE [Suspect]
     Active Substance: HYDROXYCHLOROQUINE SULFATE
     Route: 065
  6. HYDROXYCHLOROQUINE SULFATE [Suspect]
     Active Substance: HYDROXYCHLOROQUINE SULFATE
     Dosage: 25 MG, QW
     Route: 058
  7. HYDROXYCHLOROQUINE SULFATE [Suspect]
     Active Substance: HYDROXYCHLOROQUINE SULFATE
     Dosage: 25 MG, QW
     Route: 048
  8. HYDROXYCHLOROQUINE SULFATE [Suspect]
     Active Substance: HYDROXYCHLOROQUINE SULFATE
     Dosage: 25 MG, QW
     Route: 013
  9. KEVZARA [Suspect]
     Active Substance: SARILUMAB
     Indication: Product used for unknown indication
  10. METFORMIN HYDROCHLORIDE [Suspect]
     Active Substance: METFORMIN HYDROCHLORIDE
     Indication: Product used for unknown indication
  11. ALENDRONATE SODIUM [Suspect]
     Active Substance: ALENDRONATE SODIUM
     Indication: Rheumatoid arthritis
  12. ALENDRONATE SODIUM [Suspect]
     Active Substance: ALENDRONATE SODIUM
  13. ALENDRONATE SODIUM [Suspect]
     Active Substance: ALENDRONATE SODIUM
  14. ALENDRONATE SODIUM [Suspect]
     Active Substance: ALENDRONATE SODIUM
     Route: 048
  15. ALENDRONATE SODIUM [Suspect]
     Active Substance: ALENDRONATE SODIUM
     Route: 048
  16. DESOXIMETASONE [Suspect]
     Active Substance: DESOXIMETASONE
  17. DESOXIMETASONE [Suspect]
     Active Substance: DESOXIMETASONE
  18. LAMOTRIGINE [Suspect]
     Active Substance: LAMOTRIGINE
  19. METHOTREXATE [Suspect]
     Active Substance: METHOTREXATE
     Indication: Rheumatoid arthritis
     Route: 048
  20. METHOTREXATE [Suspect]
     Active Substance: METHOTREXATE
     Route: 013
  21. METHOTREXATE [Suspect]
     Active Substance: METHOTREXATE
     Route: 048
  22. METHOTREXATE [Suspect]
     Active Substance: METHOTREXATE
     Route: 065
  23. METHOTREXATE [Suspect]
     Active Substance: METHOTREXATE
     Route: 048
  24. METHOTREXATE [Suspect]
     Active Substance: METHOTREXATE
     Route: 048
  25. METHOTREXATE [Suspect]
     Active Substance: METHOTREXATE
     Route: 048
  26. METHOTREXATE [Suspect]
     Active Substance: METHOTREXATE
     Dosage: 15 MG, QW
     Route: 058
  27. METHOTREXATE [Suspect]
     Active Substance: METHOTREXATE
     Route: 048
  28. RAMIPRIL [Suspect]
     Active Substance: RAMIPRIL
     Indication: Off label use
     Route: 016
  29. TRIAMCINOLONE ACETONIDE [Suspect]
     Active Substance: TRIAMCINOLONE ACETONIDE
     Route: 013
  30. ATOMOXETINE HYDROCHLORIDE [Suspect]
     Active Substance: ATOMOXETINE HYDROCHLORIDE
  31. PREDNISONE [Suspect]
     Active Substance: PREDNISONE
     Indication: Rheumatoid arthritis
     Route: 048
  32. PREDNISONE [Suspect]
     Active Substance: PREDNISONE
     Route: 065
  33. CELECOXIB [Suspect]
     Active Substance: CELECOXIB
  34. DICLOFENAC POTASSIUM [Suspect]
     Active Substance: DICLOFENAC POTASSIUM
  35. DICLOFENAC SODIUM [Suspect]
     Active Substance: DICLOFENAC SODIUM
  36. NAPROXEN [Suspect]
     Active Substance: NAPROXEN
     Dosage: 1 DF, QD
     Route: 048
  37. NAPROXEN [Suspect]
     Active Substance: NAPROXEN
     Route: 065
  38. NAPROXEN [Suspect]
     Active Substance: NAPROXEN
     Route: 048
  39. NAPROXEN [Suspect]
     Active Substance: NAPROXEN
     Route: 048
  40. NAPROXEN [Suspect]
     Active Substance: NAPROXEN
     Route: 048
  41. NAPROXEN [Suspect]
     Active Substance: NAPROXEN
     Route: 065
  42. NAPROXEN SODIUM [Suspect]
     Active Substance: NAPROXEN SODIUM
  43. SULFASALAZINE [Suspect]
     Active Substance: SULFASALAZINE
  44. TRAMADOL HYDROCHLORIDE [Suspect]
     Active Substance: TRAMADOL HYDROCHLORIDE
     Indication: Rheumatoid arthritis
     Route: 065
  45. TRAMADOL HYDROCHLORIDE [Suspect]
     Active Substance: TRAMADOL HYDROCHLORIDE
     Route: 065
  46. ACETAMINOPHEN AND CODEINE [Suspect]
     Active Substance: ACETAMINOPHEN\CODEINE PHOSPHATE
  47. ACETAMINOPHEN [Suspect]
     Active Substance: ACETAMINOPHEN
  48. ACTEMRA [Suspect]
     Active Substance: TOCILIZUMAB
  49. AZATHIOPRINE [Suspect]
     Active Substance: AZATHIOPRINE
  50. BERINERT [Suspect]
     Active Substance: HUMAN C1-ESTERASE INHIBITOR
  51. BOTULINUM TOXIN TYPE A [Suspect]
     Active Substance: BOTULINUM TOXIN TYPE A
  52. BUTRANS [Suspect]
     Active Substance: BUPRENORPHINE
  53. CALCIUM ASCORBATE [Suspect]
     Active Substance: CALCIUM ASCORBATE
  54. CALCIUM ASCORBATE [Suspect]
     Active Substance: CALCIUM ASCORBATE
  55. CALCIUM CARBONATE\CHOLECALCIFEROL [Suspect]
     Active Substance: CALCIUM CARBONATE\CHOLECALCIFEROL
  56. CALCIUM CITRATE [Suspect]
     Active Substance: CALCIUM CITRATE
  57. CALCIUM GLUBIONATE [Suspect]
     Active Substance: CALCIUM GLUBIONATE
  58. CANDESARTAN [Suspect]
     Active Substance: CANDESARTAN
     Indication: Migraine
     Route: 048
  59. CETIRIZINE [Suspect]
     Active Substance: CETIRIZINE HYDROCHLORIDE
  60. CETIRIZINE HYDROCHLORIDE [Suspect]
     Active Substance: CETIRIZINE HYDROCHLORIDE
     Indication: Rheumatoid arthritis
  61. CETIRIZINE HYDROCHLORIDE [Suspect]
     Active Substance: CETIRIZINE HYDROCHLORIDE
  62. CETIRIZINE HYDROCHLORIDE [Suspect]
     Active Substance: CETIRIZINE HYDROCHLORIDE
  63. CHLORHEXIDINE GLUCONATE [Suspect]
     Active Substance: CHLORHEXIDINE GLUCONATE
  64. CHLORHEXIDINE GLUCONATE\ISOPROPYL ALCOHOL [Suspect]
     Active Substance: CHLORHEXIDINE GLUCONATE\ISOPROPYL ALCOHOL
  65. CIMZIA [Suspect]
     Active Substance: CERTOLIZUMAB PEGOL
  66. CORTISONE ACETATE [Suspect]
     Active Substance: CORTISONE ACETATE
  67. COSENTYX [Suspect]
     Active Substance: SECUKINUMAB
     Indication: Psoriatic arthropathy
     Route: 065
  68. COSENTYX [Suspect]
     Active Substance: SECUKINUMAB
     Route: 065
  69. COSENTYX [Suspect]
     Active Substance: SECUKINUMAB
     Route: 048
  70. COSENTYX [Suspect]
     Active Substance: SECUKINUMAB
     Route: 065
  71. COSENTYX [Suspect]
     Active Substance: SECUKINUMAB
     Dosage: 20 MG, QD
     Route: 065
  72. COSENTYX [Suspect]
     Active Substance: SECUKINUMAB
     Route: 058
  73. CUPRIC OXIDE\FOLIC ACID\NIACIN\ZINC OXIDE [Suspect]
     Active Substance: CUPRIC OXIDE\FOLIC ACID\NIACIN\ZINC OXIDE
  74. DICLOFENAC [Suspect]
     Active Substance: DICLOFENAC
  75. DOMPERIDONE MALEATE [Suspect]
     Active Substance: DOMPERIDONE MALEATE
  76. ENBREL [Suspect]
     Active Substance: ETANERCEPT
  77. ERELZI [Suspect]
     Active Substance: ETANERCEPT-SZZS
     Indication: Rheumatoid arthritis
     Route: 058
  78. ERELZI [Suspect]
     Active Substance: ETANERCEPT-SZZS
     Route: 058
  79. ERELZI [Suspect]
     Active Substance: ETANERCEPT-SZZS
     Route: 065
  80. ERELZI [Suspect]
     Active Substance: ETANERCEPT-SZZS
     Route: 065
  81. ERELZI [Suspect]
     Active Substance: ETANERCEPT-SZZS
     Route: 058
  82. ERELZI [Suspect]
     Active Substance: ETANERCEPT-SZZS
     Route: 058
  83. ERELZI [Suspect]
     Active Substance: ETANERCEPT-SZZS
     Route: 065
  84. ERENUMAB-AOOE [Suspect]
     Active Substance: ERENUMAB-AOOE
     Indication: Migraine
     Route: 058
  85. ERGOCALCIFEROL [Suspect]
     Active Substance: ERGOCALCIFEROL
  86. FLUMETHASONE [Suspect]
     Active Substance: FLUMETHASONE
  87. FLUMETHASONE PIVALATE [Suspect]
     Active Substance: FLUMETHASONE PIVALATE
  88. FLUMETHASONE PIVALATE [Suspect]
     Active Substance: FLUMETHASONE PIVALATE
  89. FOLIC ACID [Suspect]
     Active Substance: FOLIC ACID
  90. FOSAMAX [Suspect]
     Active Substance: ALENDRONATE SODIUM
  91. GOLD [Suspect]
     Active Substance: GOLD
  92. HAIR KERATIN AMINO ACIDS GOLD COMPLEX [Suspect]
     Active Substance: HAIR KERATIN AMINO ACIDS GOLD COMPLEX
  93. GOLD SODIUM THIOMALATE [Suspect]
     Active Substance: GOLD SODIUM THIOMALATE
  94. HYDROCORTISONE BUTYRATE [Suspect]
     Active Substance: HYDROCORTISONE BUTYRATE
  95. HYDROCORTISONE PROBUTATE [Suspect]
     Active Substance: HYDROCORTISONE PROBUTATE
  96. HYRIMOZ [Suspect]
     Active Substance: ADALIMUMAB-ADAZ
     Indication: Rheumatoid arthritis
     Route: 058
  97. HYRIMOZ [Suspect]
     Active Substance: ADALIMUMAB-ADAZ
     Route: 058
  98. HYRIMOZ [Suspect]
     Active Substance: ADALIMUMAB-ADAZ
     Route: 058
  99. HYRIMOZ [Suspect]
     Active Substance: ADALIMUMAB-ADAZ
     Route: 065
  100. HYRIMOZ [Suspect]
     Active Substance: ADALIMUMAB-ADAZ
     Route: 065
  101. HYRIMOZ [Suspect]
     Active Substance: ADALIMUMAB-ADAZ
     Route: 058
  102. HYRIMOZ [Suspect]
     Active Substance: ADALIMUMAB-ADAZ
     Route: 058
  103. HYRIMOZ [Suspect]
     Active Substance: ADALIMUMAB-ADAZ
     Route: 058
  104. INFLIXIMAB [Suspect]
     Active Substance: INFLIXIMAB
     Indication: Rheumatoid arthritis
     Route: 042
  105. INFLIXIMAB [Suspect]
     Active Substance: INFLIXIMAB
     Route: 065
  106. INFLIXIMAB [Suspect]
     Active Substance: INFLIXIMAB
     Route: 065
  107. INFLIXIMAB [Suspect]
     Active Substance: INFLIXIMAB
     Route: 065
  108. INFLIXIMAB [Suspect]
     Active Substance: INFLIXIMAB
     Route: 065
  109. INFLIXIMAB [Suspect]
     Active Substance: INFLIXIMAB
     Route: 065
  110. INFLIXIMAB [Suspect]
     Active Substance: INFLIXIMAB
     Route: 065
  111. INFLIXIMAB [Suspect]
     Active Substance: INFLIXIMAB
     Route: 065
  112. INFLIXIMAB [Suspect]
     Active Substance: INFLIXIMAB
     Route: 065
  113. ISOPROPYL ALCOHOL [Suspect]
     Active Substance: ISOPROPYL ALCOHOL
     Route: 061
  114. MAGNESIUM CITRATE [Suspect]
     Active Substance: MAGNESIUM CITRATE
  115. MAGNESIUM CITRATE [Suspect]
     Active Substance: MAGNESIUM CITRATE
  116. MAGNESIUM CITRATE [Suspect]
     Active Substance: MAGNESIUM CITRATE
  117. MAGNESIUM CITRATE [Suspect]
     Active Substance: MAGNESIUM CITRATE
  118. MAGNESIUM CITRATE [Suspect]
     Active Substance: MAGNESIUM CITRATE
  119. METHYLPREDNISOLONE ACETATE [Suspect]
     Active Substance: METHYLPREDNISOLONE ACETATE
     Indication: Rheumatoid arthritis
     Dosage: 25 MG, QW
     Route: 048
  120. METHYLPREDNISOLONE ACETATE [Suspect]
     Active Substance: METHYLPREDNISOLONE ACETATE
     Route: 048
  121. METHYLPREDNISOLONE ACETATE [Suspect]
     Active Substance: METHYLPREDNISOLONE ACETATE
     Route: 058
  122. METHYLPREDNISOLONE SODIUM SUCCINATE [Suspect]
     Active Substance: METHYLPREDNISOLONE SODIUM SUCCINATE
  123. MINOCYCLINE HYDROCHLORIDE [Suspect]
     Active Substance: MINOCYCLINE HYDROCHLORIDE
     Route: 048
  124. MINOCYCLINE HYDROCHLORIDE [Suspect]
     Active Substance: MINOCYCLINE HYDROCHLORIDE
     Route: 065
  125. MYOCHRYSINE [Suspect]
     Active Substance: GOLD SODIUM THIOMALATE
     Indication: Rheumatoid arthritis
     Route: 065
  126. MYOCHRYSINE [Suspect]
     Active Substance: GOLD SODIUM THIOMALATE
     Route: 065
  127. MYOCHRYSINE [Suspect]
     Active Substance: GOLD SODIUM THIOMALATE
     Route: 048
  128. MYOCHRYSINE [Suspect]
     Active Substance: GOLD SODIUM THIOMALATE
     Route: 065
  129. MYOCHRYSINE [Suspect]
     Active Substance: GOLD SODIUM THIOMALATE
     Dosage: 50 MG, QD
     Route: 048
  130. MYOCHRYSINE [Suspect]
     Active Substance: GOLD SODIUM THIOMALATE
     Route: 065
  131. MYOCHRYSINE [Suspect]
     Active Substance: GOLD SODIUM THIOMALATE
     Route: 065
  132. MYOCHRYSINE [Suspect]
     Active Substance: GOLD SODIUM THIOMALATE
     Route: 065
  133. MYOCHRYSINE [Suspect]
     Active Substance: GOLD SODIUM THIOMALATE
     Route: 065
  134. MYOCHRYSINE [Suspect]
     Active Substance: GOLD SODIUM THIOMALATE
     Route: 065
  135. MYOCHRYSINE [Suspect]
     Active Substance: GOLD SODIUM THIOMALATE
     Route: 065
  136. MYOCHRYSINE [Suspect]
     Active Substance: GOLD SODIUM THIOMALATE
     Route: 065
  137. MYOCHRYSINE [Suspect]
     Active Substance: GOLD SODIUM THIOMALATE
     Route: 065
  138. MYOCHRYSINE [Suspect]
     Active Substance: GOLD SODIUM THIOMALATE
     Route: 065
  139. MYOCHRYSINE [Suspect]
     Active Substance: GOLD SODIUM THIOMALATE
     Route: 065
  140. MYOCHRYSINE [Suspect]
     Active Substance: GOLD SODIUM THIOMALATE
     Route: 065
  141. MYOCHRYSINE [Suspect]
     Active Substance: GOLD SODIUM THIOMALATE
     Route: 065
  142. MYOCHRYSINE [Suspect]
     Active Substance: GOLD SODIUM THIOMALATE
     Route: 065
  143. MYOCHRYSINE [Suspect]
     Active Substance: GOLD SODIUM THIOMALATE
     Route: 030
  144. MYRBETRIQ [Suspect]
     Active Substance: MIRABEGRON
     Indication: Rheumatoid arthritis
  145. NUCALA [Suspect]
     Active Substance: MEPOLIZUMAB
  146. NUCALA [Suspect]
     Active Substance: MEPOLIZUMAB
  147. NUCALA [Suspect]
     Active Substance: MEPOLIZUMAB
     Route: 065
  148. NUCALA [Suspect]
     Active Substance: MEPOLIZUMAB
     Route: 048
  149. NUCALA [Suspect]
     Active Substance: MEPOLIZUMAB
     Route: 065
  150. NUCALA [Suspect]
     Active Substance: MEPOLIZUMAB
     Route: 065
  151. NUCALA [Suspect]
     Active Substance: MEPOLIZUMAB
     Dosage: 400 MG, QD
     Route: 048
  152. NUCALA [Suspect]
     Active Substance: MEPOLIZUMAB
     Route: 065
  153. NUCALA [Suspect]
     Active Substance: MEPOLIZUMAB
     Route: 065
  154. NUCALA [Suspect]
     Active Substance: MEPOLIZUMAB
     Route: 048
  155. NUCALA [Suspect]
     Active Substance: MEPOLIZUMAB
     Route: 048
  156. NUCALA [Suspect]
     Active Substance: MEPOLIZUMAB
     Route: 048
  157. NUCALA [Suspect]
     Active Substance: MEPOLIZUMAB
     Route: 048
  158. NUCALA [Suspect]
     Active Substance: MEPOLIZUMAB
     Route: 048
  159. NUCALA [Suspect]
     Active Substance: MEPOLIZUMAB
     Dosage: 400 MG, QD
     Route: 048
  160. NUCALA [Suspect]
     Active Substance: MEPOLIZUMAB
     Route: 048
  161. NUCALA [Suspect]
     Active Substance: MEPOLIZUMAB
     Route: 048
  162. NUCALA [Suspect]
     Active Substance: MEPOLIZUMAB
     Route: 048
  163. NUCALA [Suspect]
     Active Substance: MEPOLIZUMAB
     Route: 048
  164. NUCALA [Suspect]
     Active Substance: MEPOLIZUMAB
     Route: 048
  165. NUCALA [Suspect]
     Active Substance: MEPOLIZUMAB
     Route: 048
  166. NUCALA [Suspect]
     Active Substance: MEPOLIZUMAB
     Route: 065
  167. NUCALA [Suspect]
     Active Substance: MEPOLIZUMAB
     Route: 048
  168. ORENCIA [Suspect]
     Active Substance: ABATACEPT
     Route: 065
  169. ORENCIA [Suspect]
     Active Substance: ABATACEPT
     Route: 065
  170. ORENCIA [Suspect]
     Active Substance: ABATACEPT
     Route: 065
  171. ORENCIA [Suspect]
     Active Substance: ABATACEPT
     Route: 065
  172. ORENCIA [Suspect]
     Active Substance: ABATACEPT
     Route: 065
  173. OXYCODONE [Suspect]
     Active Substance: OXYCODONE
  174. OXYCODONE [Suspect]
     Active Substance: OXYCODONE
  175. PHTHALYLSULFATHIAZOLE [Suspect]
     Active Substance: PHTHALYLSULFATHIAZOLE
     Indication: Rheumatoid arthritis
     Route: 058
  176. PHTHALYLSULFATHIAZOLE [Suspect]
     Active Substance: PHTHALYLSULFATHIAZOLE
     Route: 058
  177. PSEUDOEPHEDRINE [Suspect]
     Active Substance: PSEUDOEPHEDRINE
  178. PSEUDOEPHEDRINE HYDROCHLORIDE [Suspect]
     Active Substance: PSEUDOEPHEDRINE HYDROCHLORIDE
     Indication: Rheumatoid arthritis
     Route: 065
  179. PSEUDOEPHEDRINE HYDROCHLORIDE [Suspect]
     Active Substance: PSEUDOEPHEDRINE HYDROCHLORIDE
     Route: 065
  180. PSEUDOEPHEDRINE HYDROCHLORIDE [Suspect]
     Active Substance: PSEUDOEPHEDRINE HYDROCHLORIDE
     Route: 058
  181. PSEUDOEPHEDRINE HYDROCHLORIDE [Suspect]
     Active Substance: PSEUDOEPHEDRINE HYDROCHLORIDE
     Route: 058
  182. PSEUDOEPHEDRINE HYDROCHLORIDE [Suspect]
     Active Substance: PSEUDOEPHEDRINE HYDROCHLORIDE
     Route: 058
  183. PSEUDOEPHEDRINE HYDROCHLORIDE [Suspect]
     Active Substance: PSEUDOEPHEDRINE HYDROCHLORIDE
     Route: 058
  184. PSEUDOEPHEDRINE HYDROCHLORIDE [Suspect]
     Active Substance: PSEUDOEPHEDRINE HYDROCHLORIDE
     Route: 058
  185. PSEUDOEPHEDRINE HYDROCHLORIDE [Suspect]
     Active Substance: PSEUDOEPHEDRINE HYDROCHLORIDE
     Route: 065
  186. PSEUDOEPHEDRINE HYDROCHLORIDE [Suspect]
     Active Substance: PSEUDOEPHEDRINE HYDROCHLORIDE
     Route: 065
  187. PSEUDOEPHEDRINE HYDROCHLORIDE [Suspect]
     Active Substance: PSEUDOEPHEDRINE HYDROCHLORIDE
     Route: 065
  188. PSEUDOEPHEDRINE HYDROCHLORIDE [Suspect]
     Active Substance: PSEUDOEPHEDRINE HYDROCHLORIDE
     Route: 065
  189. PSEUDOEPHEDRINE HYDROCHLORIDE [Suspect]
     Active Substance: PSEUDOEPHEDRINE HYDROCHLORIDE
     Route: 065
  190. RANITIDINE HYDROCHLORIDE [Suspect]
     Active Substance: RANITIDINE HYDROCHLORIDE
  191. RANITIDINE HYDROCHLORIDE [Suspect]
     Active Substance: RANITIDINE HYDROCHLORIDE
     Route: 042
  192. RANITIDINE HYDROCHLORIDE [Suspect]
     Active Substance: RANITIDINE HYDROCHLORIDE
     Route: 065
  193. RANITIDINE HYDROCHLORIDE [Suspect]
     Active Substance: RANITIDINE HYDROCHLORIDE
     Route: 065
  194. RANITIDINE HYDROCHLORIDE [Suspect]
     Active Substance: RANITIDINE HYDROCHLORIDE
     Route: 065
  195. REMICADE [Suspect]
     Active Substance: INFLIXIMAB
     Route: 042
  196. RITUXIMAB [Suspect]
     Active Substance: RITUXIMAB
     Indication: Rheumatoid arthritis
     Route: 065
  197. RITUXIMAB [Suspect]
     Active Substance: RITUXIMAB
     Dosage: 2 G, QD
     Route: 065
  198. RITUXIMAB [Suspect]
     Active Substance: RITUXIMAB
     Dosage: 2000 MG, QD
     Route: 065
  199. RITUXIMAB [Suspect]
     Active Substance: RITUXIMAB
     Dosage: 2 G, QD
     Route: 065
  200. RITUXIMAB [Suspect]
     Active Substance: RITUXIMAB
     Route: 042
  201. RITUXIMAB [Suspect]
     Active Substance: RITUXIMAB
     Dosage: 2000 MG, QD
     Route: 065
  202. RITUXIMAB [Suspect]
     Active Substance: RITUXIMAB
     Route: 019
  203. RITUXIMAB [Suspect]
     Active Substance: RITUXIMAB
     Route: 016
  204. RITUXIMAB [Suspect]
     Active Substance: RITUXIMAB
     Route: 065
  205. RITUXIMAB [Suspect]
     Active Substance: RITUXIMAB
     Route: 065
  206. RITUXIMAB [Suspect]
     Active Substance: RITUXIMAB
     Dosage: 2000 MG, QD
     Route: 065
  207. RITUXIMAB [Suspect]
     Active Substance: RITUXIMAB
     Route: 065
  208. RITUXIMAB [Suspect]
     Active Substance: RITUXIMAB
     Dosage: UNK UNK, QD
     Route: 042
  209. RITUXIMAB [Suspect]
     Active Substance: RITUXIMAB
     Route: 065
  210. RITUXIMAB [Suspect]
     Active Substance: RITUXIMAB
     Route: 042
  211. RITUXIMAB [Suspect]
     Active Substance: RITUXIMAB
     Dosage: 2 G, QD
     Route: 042
  212. RITUXIMAB [Suspect]
     Active Substance: RITUXIMAB
     Dosage: 1 G, QD
     Route: 042
  213. SULFASALAZINE [Suspect]
     Active Substance: SULFASALAZINE
     Indication: Rheumatoid arthritis
     Route: 048
  214. SULFASALAZINE [Suspect]
     Active Substance: SULFASALAZINE
     Dosage: 15 MG, QW
     Route: 058
  215. SULFASALAZINE [Suspect]
     Active Substance: SULFASALAZINE
     Route: 065
  216. SULFASALAZINE [Suspect]
     Active Substance: SULFASALAZINE
     Route: 048
  217. SULFASALAZINE [Suspect]
     Active Substance: SULFASALAZINE
     Dosage: 25 MG, QW
     Route: 058
  218. SULFASALAZINE [Suspect]
     Active Substance: SULFASALAZINE
     Route: 065
  219. DICLOFENAC SODIUM [Suspect]
     Active Substance: DICLOFENAC SODIUM
  220. HYDROCORTISONE [Suspect]
     Active Substance: HYDROCORTISONE
  221. TOPIRAMATE [Suspect]
     Active Substance: TOPIRAMATE
     Route: 065
  222. TOPIRAMATE [Suspect]
     Active Substance: TOPIRAMATE
     Route: 065
  223. SIMPONI [Suspect]
     Active Substance: GOLIMUMAB
     Indication: Rheumatoid arthritis
     Route: 048
  224. SIRUKUMAB [Suspect]
     Active Substance: SIRUKUMAB
     Indication: Rheumatoid arthritis
  225. SIRUKUMAB [Suspect]
     Active Substance: SIRUKUMAB
     Indication: Prostatic specific antigen
     Route: 048
  226. GOLD SODIUM THIOMALATE [Suspect]
     Active Substance: GOLD SODIUM THIOMALATE
     Route: 016
  227. SULFAMETHOXAZOLE AND TRIMETHOPRIM [Suspect]
     Active Substance: SULFAMETHOXAZOLE\TRIMETHOPRIM
  228. TOFACITINIB [Suspect]
     Active Substance: TOFACITINIB
  229. VITAMIN C [Suspect]
     Active Substance: ASCORBIC ACID
     Route: 065
  230. XELJANZ [Suspect]
     Active Substance: TOFACITINIB CITRATE
     Route: 065
  231. XELJANZ [Suspect]
     Active Substance: TOFACITINIB CITRATE
     Route: 048
  232. XELJANZ [Suspect]
     Active Substance: TOFACITINIB CITRATE
     Route: 065
  233. XELJANZ [Suspect]
     Active Substance: TOFACITINIB CITRATE
     Route: 065
  234. XELJANZ [Suspect]
     Active Substance: TOFACITINIB CITRATE
     Route: 065
  235. XELJANZ [Suspect]
     Active Substance: TOFACITINIB CITRATE
     Route: 065
  236. XELJANZ [Suspect]
     Active Substance: TOFACITINIB CITRATE
     Route: 065
  237. XELJANZ [Suspect]
     Active Substance: TOFACITINIB CITRATE
     Route: 065
  238. XELJANZ [Suspect]
     Active Substance: TOFACITINIB CITRATE
     Route: 065
  239. XELJANZ [Suspect]
     Active Substance: TOFACITINIB CITRATE
     Route: 065
  240. XELJANZ [Suspect]
     Active Substance: TOFACITINIB CITRATE
     Route: 065
  241. XELJANZ [Suspect]
     Active Substance: TOFACITINIB CITRATE
     Route: 065
  242. XELJANZ [Suspect]
     Active Substance: TOFACITINIB CITRATE
     Route: 065
  243. XELJANZ [Suspect]
     Active Substance: TOFACITINIB CITRATE
     Route: 065
  244. XELJANZ [Suspect]
     Active Substance: TOFACITINIB CITRATE
     Route: 065
  245. XELJANZ [Suspect]
     Active Substance: TOFACITINIB CITRATE
     Route: 065
  246. XELJANZ [Suspect]
     Active Substance: TOFACITINIB CITRATE
     Route: 030
  247. XELJANZ [Suspect]
     Active Substance: TOFACITINIB CITRATE
     Route: 030
  248. XELJANZ [Suspect]
     Active Substance: TOFACITINIB CITRATE
     Route: 065
  249. DESOGESTREL\ETHINYL ESTRADIOL [Concomitant]
     Active Substance: DESOGESTREL\ETHINYL ESTRADIOL

REACTIONS (10)
  - Discomfort [Fatal]
  - Depression [Fatal]
  - Dizziness [Fatal]
  - Dry mouth [Fatal]
  - Duodenal ulcer perforation [Fatal]
  - Epilepsy [Fatal]
  - Fibromyalgia [Fatal]
  - Facet joint syndrome [Fatal]
  - Drug ineffective [Fatal]
  - Drug intolerance [Fatal]
